FAERS Safety Report 15274547 (Version 1)
Quarter: 2018Q3

REPORT INFORMATION
  Report Type: Spontaneous
  Country: FR (occurrence: FR)
  Receive Date: 20180814
  Receipt Date: 20180814
  Transmission Date: 20181010
  Serious: Yes (Other)
  Sender: FDA-Public Use
  Company Number: FR-ABBVIE-18S-056-2448209-00

PATIENT
  Age: 53 Year
  Sex: Male
  Weight: 68 kg

DRUGS (3)
  1. TRIFLUCAN [Suspect]
     Active Substance: FLUCONAZOLE
     Indication: OROPHARYNGEAL CANDIDIASIS
     Route: 048
     Dates: start: 20180515, end: 20180530
  2. KENACORT [Suspect]
     Active Substance: TRIAMCINOLONE
     Indication: ARTHRALGIA
     Dosage: 1 INJECTION/J,  80 MG/2 ML
     Route: 014
     Dates: start: 20180415, end: 20180417
  3. NORVIR [Suspect]
     Active Substance: RITONAVIR
     Indication: ACQUIRED IMMUNODEFICIENCY SYNDROME
     Dosage: 1/JOUR
     Route: 048
     Dates: start: 20100702

REACTIONS (3)
  - CD4 lymphocytes decreased [Recovered/Resolved]
  - Oropharyngeal candidiasis [Recovered/Resolved]
  - Hypercorticoidism [Recovering/Resolving]

NARRATIVE: CASE EVENT DATE: 20180427
